FAERS Safety Report 8969070 (Version 1)
Quarter: 2012Q4

REPORT INFORMATION
  Report Type: 
  Country: US (occurrence: US)
  Receive Date: 20121218
  Receipt Date: 20121218
  Transmission Date: 20130627
  Serious: Yes (Hospitalization)
  Sender: FDA-Public Use
  Company Number: US-BRISTOL-MYERS SQUIBB COMPANY-16713927

PATIENT
  Age: 18 Year
  Sex: Male

DRUGS (3)
  1. ABILIFY [Suspect]
     Indication: AFFECTIVE DISORDER
     Dosage: 7mg and increased to 20mg
  2. ABILIFY [Suspect]
     Indication: AUTISM
     Dosage: 7mg and increased to 20mg
  3. CELEXA [Concomitant]
     Dosage: 10mg every other day

REACTIONS (2)
  - Adverse event [Unknown]
  - Drug dose omission [Unknown]
